FAERS Safety Report 7796705-5 (Version None)
Quarter: 2011Q4

REPORT INFORMATION
  Report Type: 
  Country: None (occurrence: None)
  Receive Date: 20111005
  Receipt Date: 20110923
  Transmission Date: 20120403
  Serious: Yes (Other)
  Sender: FDA-Public Use
  Company Number: US-JNJFOC-20110808877

PATIENT
  Sex: Male
  Weight: 39.5 kg

DRUGS (13)
  1. REMICADE [Suspect]
     Route: 042
     Dates: start: 20110624
  2. MESALAMINE [Concomitant]
     Route: 048
  3. CENTRUM MULTIVITAMINS [Concomitant]
  4. REMICADE [Suspect]
     Indication: INFLAMMATORY BOWEL DISEASE
     Route: 042
     Dates: start: 20091006
  5. REMICADE [Suspect]
     Route: 042
     Dates: start: 20110514
  6. ATIVAN [Concomitant]
     Indication: PREMEDICATION
     Route: 042
  7. REMICADE [Suspect]
     Route: 042
     Dates: start: 20091020
  8. PROBIOTICS [Concomitant]
  9. ANTIBIOTICS FOR IBD [Concomitant]
     Indication: INFLAMMATORY BOWEL DISEASE
  10. REMICADE [Suspect]
     Route: 042
     Dates: start: 20091117
  11. REMICADE [Suspect]
     Route: 042
     Dates: start: 20050728, end: 20060609
  12. FERROUS SULFATE TAB [Concomitant]
  13. PERIACTIN [Concomitant]

REACTIONS (2)
  - INFUSION RELATED REACTION [None]
  - ANAPHYLACTIC REACTION [None]
